FAERS Safety Report 8827384 (Version 1)
Quarter: 2012Q4

REPORT INFORMATION
  Report Type: 
  Country: US (occurrence: US)
  Receive Date: 20121005
  Receipt Date: 20121005
  Transmission Date: 20130627
  Serious: No
  Sender: FDA-Public Use
  Company Number: US-BRISTOL-MYERS SQUIBB COMPANY-16376204

PATIENT
  Sex: Male

DRUGS (3)
  1. AVAPRO [Suspect]
     Dosage: Approximately 15 years ago
  2. IBUPROFEN [Interacting]
     Indication: BACK PAIN
  3. HYDRALAZINE [Interacting]
     Indication: BLOOD PRESSURE

REACTIONS (2)
  - Drug interaction [Unknown]
  - Hypotension [Unknown]
